FAERS Safety Report 7658895-4 (Version None)
Quarter: 2011Q3

REPORT INFORMATION
  Report Type: 
  Country: None (occurrence: None)
  Receive Date: 20110802
  Receipt Date: 20110725
  Transmission Date: 20111222
  Serious: Yes (Other)
  Sender: FDA-Public Use
  Company Number: US-001885

PATIENT
  Sex: Female

DRUGS (2)
  1. KUVAN [Suspect]
  2. KUVAN [Suspect]
     Indication: PHENYLKETONURIA
     Dosage: (1800 MG QD  ORAL), (900 MG QD ORAL)
     Dates: start: 20110609

REACTIONS (7)
  - ABDOMINAL PAIN UPPER [None]
  - MELAENA [None]
  - FATIGUE [None]
  - HAEMATOCHEZIA [None]
  - DISORIENTATION [None]
  - STAPHYLOCOCCAL INFECTION [None]
  - DIZZINESS [None]
